FAERS Safety Report 22251082 (Version 1)
Quarter: 2023Q2

REPORT INFORMATION
  Report Type: Spontaneous
  Country: US (occurrence: None)
  Receive Date: 20230425
  Receipt Date: 20230425
  Transmission Date: 20230722
  Serious: No
  Sender: FDA-Public Use
  Company Number: None

PATIENT
  Age: 46 Year
  Sex: Female
  Weight: 97.65 kg

DRUGS (13)
  1. WEGOVY [Suspect]
     Active Substance: SEMAGLUTIDE
     Indication: Obesity
     Dosage: FREQUENCY : WEEKLY;?
     Route: 058
     Dates: start: 20230418
  2. DIOVAN [Concomitant]
     Active Substance: VALSARTAN
  3. FLOVENT [Concomitant]
     Active Substance: FLUTICASONE PROPIONATE
  4. BUDESONIDE [Concomitant]
     Active Substance: BUDESONIDE
  5. Furmoterol [Concomitant]
  6. ALBUTEROL [Concomitant]
     Active Substance: ALBUTEROL
  7. Wellbutrin XL 3 [Concomitant]
  8. PROZAC [Concomitant]
     Active Substance: FLUOXETINE HYDROCHLORIDE
  9. SYNTHROID [Concomitant]
     Active Substance: LEVOTHYROXINE SODIUM
  10. FLONASE [Concomitant]
     Active Substance: FLUTICASONE PROPIONATE
  11. Flintstone multi vitamin daily [Concomitant]
  12. CALTRATE [Concomitant]
     Active Substance: CALCIUM CARBONATE
  13. VITAMIN C [Concomitant]
     Active Substance: ASCORBIC ACID

REACTIONS (4)
  - Wrong technique in product usage process [None]
  - Injection site discharge [None]
  - Ear discomfort [None]
  - Ear disorder [None]

NARRATIVE: CASE EVENT DATE: 20230418
